FAERS Safety Report 5191610-5 (Version None)
Quarter: 2006Q4

REPORT INFORMATION
  Report Type: 
  Country: None (occurrence: None)
  Receive Date: 20061226
  Receipt Date: 20060925
  Transmission Date: 20070319
  Serious: Yes (Hospitalization)
  Sender: FDA-Public Use
  Company Number: US-ELI_LILLY_AND_COMPANY-US200612003342

PATIENT
  Age: 52 Year
  Sex: Male
  Weight: 83.9 kg

DRUGS (7)
  1. ZYPREXA [Suspect]
     Dosage: 5 MG, UNK
     Dates: start: 19961201
  2. ZYPREXA [Suspect]
     Dosage: 7.5 MG, UNK
  3. ZYPREXA [Suspect]
     Dosage: 10 MG, UNK
  4. ZYPREXA [Suspect]
     Dosage: 15 MG, UNK
  5. WELLBUTRIN [Concomitant]
     Dates: start: 19940101, end: 19961201
  6. NAVANE [Concomitant]
     Dates: start: 19930101, end: 20061201
  7. PROZAC [Concomitant]
     Dates: start: 19961201

REACTIONS (5)
  - ANGIOPATHY [None]
  - BLOOD CHOLESTEROL INCREASED [None]
  - BLOOD TRIGLYCERIDES INCREASED [None]
  - DIABETES MELLITUS NON-INSULIN-DEPENDENT [None]
  - HYPERTENSION [None]
